FAERS Safety Report 9343156 (Version 1)
Quarter: 2013Q2

REPORT INFORMATION
  Report Type: Spontaneous
  Country: US (occurrence: US)
  Receive Date: 20130611
  Receipt Date: 20130611
  Transmission Date: 20140414
  Serious: Yes (Hospitalization)
  Sender: FDA-Public Use
  Company Number: PHHY2013US056837

PATIENT
  Age: 58 Year
  Sex: Female

DRUGS (1)
  1. PARACETAMOL [Suspect]
     Indication: PAIN
     Dosage: 4 G (GREATER THAN 4 GM PER DAY)

REACTIONS (5)
  - Diarrhoea [Unknown]
  - Metabolic acidosis [Recovering/Resolving]
  - Mental status changes [Recovering/Resolving]
  - Nausea [Unknown]
  - Vomiting [Unknown]
